FAERS Safety Report 8622185-3 (Version None)
Quarter: 2012Q3

REPORT INFORMATION
  Report Type: 
  Country: None (occurrence: None)
  Receive Date: 20120826
  Receipt Date: 20120813
  Transmission Date: 20120928
  Serious: Yes (Other)
  Sender: FDA-Public Use
  Company Number: CA-BRISTOL-MYERS SQUIBB COMPANY-16635534

PATIENT
  Age: 33 Year
  Sex: Female

DRUGS (6)
  1. ORENCIA [Suspect]
     Indication: RHEUMATOID ARTHRITIS
     Dosage: RESTARTED ON 23MAR2012( INF:6). LAST DOSE: 25MAY2012,17JUL2012
     Route: 042
     Dates: start: 20090824
  2. FOLIC ACID [Concomitant]
  3. METHOTREXATE [Concomitant]
  4. SYNTHROID [Concomitant]
  5. PREDNISONE TAB [Concomitant]
  6. PLAQUENIL [Concomitant]

REACTIONS (3)
  - INFERTILITY [None]
  - ARTHRALGIA [None]
  - STOMATITIS [None]
